FAERS Safety Report 5821863-9 (Version None)
Quarter: 2008Q3

REPORT INFORMATION
  Report Type: 
  Country: None (occurrence: None)
  Receive Date: 20080724
  Receipt Date: 20080707
  Transmission Date: 20090109
  Serious: Yes (Death, Hospitalization)
  Sender: FDA-Public Use
  Company Number: DE-ROCHE-569562

PATIENT
  Sex: Male
  Weight: 97 kg

DRUGS (7)
  1. XELODA [Suspect]
     Indication: COLON CANCER
     Route: 048
  2. AVASTIN [Suspect]
     Indication: COLON CANCER
     Route: 042
  3. METOPROLOL TARTRATE [Concomitant]
  4. RAMIPRIL [Concomitant]
  5. ALLOPURINOL [Concomitant]
  6. BISOPROLOL FUMARATE [Concomitant]
  7. ENALAPRIL MALEATE [Concomitant]

REACTIONS (5)
  - BILE DUCT NECROSIS [None]
  - BLOOD BILIRUBIN INCREASED [None]
  - HEPATIC FAILURE [None]
  - RENAL FAILURE [None]
  - TRANSAMINASES INCREASED [None]
